FAERS Safety Report 15900879 (Version 2)
Quarter: 2019Q1

REPORT INFORMATION
  Report Type: Spontaneous
  Country: US (occurrence: US)
  Receive Date: 20190201
  Receipt Date: 20190318
  Transmission Date: 20190417
  Serious: Yes (Other)
  Sender: FDA-Public Use
  Company Number: US-009507513-1901USA010663

PATIENT
  Sex: Female

DRUGS (5)
  1. LEVETIRACETAM. [Suspect]
     Active Substance: LEVETIRACETAM
     Dosage: 750 MILLIGRAM
     Dates: start: 2013
  2. TEMODAR [Suspect]
     Active Substance: TEMOZOLOMIDE
     Dosage: HAD TO BACK DOWN THE DOSE
  3. TEMODAR [Suspect]
     Active Substance: TEMOZOLOMIDE
     Dosage: ON A LOW DOSE
     Dates: start: 201112, end: 201201
  4. LEVETIRACETAM. [Suspect]
     Active Substance: LEVETIRACETAM
     Dosage: DOSE LOWERED TO 500 MILLIGRAM
  5. TEMODAR [Suspect]
     Active Substance: TEMOZOLOMIDE
     Dosage: ON A HIGHER DOSE
     Dates: start: 201202, end: 201302

REACTIONS (5)
  - Cystitis interstitial [Not Recovered/Not Resolved]
  - Road traffic accident [Unknown]
  - Partial seizures [Unknown]
  - Retinal tear [Unknown]
  - White blood cell count abnormal [Unknown]

NARRATIVE: CASE EVENT DATE: 201602
